FAERS Safety Report 8300277-6 (Version None)
Quarter: 2012Q2

REPORT INFORMATION
  Report Type: 
  Country: None (occurrence: None)
  Receive Date: 20120417
  Receipt Date: 20120411
  Transmission Date: 20120825
  Serious: Yes (Death)
  Sender: FDA-Public Use
  Company Number: CIP-2012-00115

PATIENT

DRUGS (4)
  1. IRINOTECAN HCL [Suspect]
     Indication: OESOPHAGEAL CARCINOMA
     Dosage: 65 MG/M (DAYS 1 AND 8 ALL CYCLES), UNK
  2. CETUXIMAB (CETUXIMAB) [Suspect]
     Indication: OESOPHAGEAL CARCINOMA
     Dosage: 400 MG/M (DAY 1, CYCLE 1), UNK 250 MG/M (DAY 8,15,CYCLE 1;DAYS 1,8,15 OTHER CYCLE), UNK
  3. THORACIC RADIOTHERAPY (ALL OTHER THERAPEUTIC PRODUCTS) [Suspect]
     Indication: OESOPHAGEAL CARCINOMA
     Dosage: 1.8 GY FOR A TOTAL DOSE OF 50.4 GY AFTER 28 DAYS (DAY 1 CYCLE 3)
  4. CISPLATIN [Suspect]
     Indication: OESOPHAGEAL CARCINOMA
     Dosage: 30 MG/M (DAYS 1 AND 8, ALL CYCLES), UNK

REACTIONS (1)
  - GASTROINTESTINAL NECROSIS [None]
